FAERS Safety Report 15803131 (Version 2)
Quarter: 2019Q1

REPORT INFORMATION
  Report Type: Spontaneous
  Country: JP (occurrence: JP)
  Receive Date: 20190109
  Receipt Date: 20190115
  Transmission Date: 20190417
  Serious: Yes (Other)
  Sender: FDA-Public Use
  Company Number: JP-PFIZER INC-2019009409

PATIENT
  Age: 73 Year
  Sex: Female

DRUGS (9)
  1. METHYLPREDNISOLONE. [Suspect]
     Active Substance: METHYLPREDNISOLONE
     Indication: INFLAMMATORY PSEUDOTUMOUR
  2. PREDNISOLONE. [Suspect]
     Active Substance: PREDNISOLONE
     Indication: EPSTEIN-BARR VIRUS INFECTION
     Dosage: 30 MG, 1X/DAY
     Route: 048
  3. ACICLOVIR [Concomitant]
     Active Substance: ACYCLOVIR
     Indication: INFLAMMATORY PSEUDOTUMOUR
  4. METHYLPREDNISOLONE. [Suspect]
     Active Substance: METHYLPREDNISOLONE
     Indication: IRIDOCYCLITIS
  5. ACICLOVIR [Concomitant]
     Active Substance: ACYCLOVIR
     Indication: EPSTEIN-BARR VIRUS INFECTION
     Dosage: UNK
     Route: 042
  6. METHYLPREDNISOLONE. [Suspect]
     Active Substance: METHYLPREDNISOLONE
     Indication: EPSTEIN-BARR VIRUS INFECTION
     Dosage: 1 G, UNK (PULSE THERAPY)
  7. PREDNISOLONE. [Suspect]
     Active Substance: PREDNISOLONE
     Indication: INFLAMMATORY PSEUDOTUMOUR
  8. PREDNISOLONE. [Suspect]
     Active Substance: PREDNISOLONE
     Indication: IRIDOCYCLITIS
  9. ACICLOVIR [Concomitant]
     Active Substance: ACYCLOVIR
     Indication: IRIDOCYCLITIS

REACTIONS (1)
  - Condition aggravated [Recovered/Resolved]
